FAERS Safety Report 10309270 (Version 2)
Quarter: 2014Q3

REPORT INFORMATION
  Report Type: Report from Study
  Country: US (occurrence: US)
  Receive Date: 20140716
  Receipt Date: 20140912
  Transmission Date: 20150326
  Serious: Yes (Other)
  Sender: FDA-Public Use
  Company Number: US-GILEAD-2014-0108808

PATIENT
  Age: 56 Year
  Sex: Male

DRUGS (3)
  1. SOFOSBUVIR [Suspect]
     Active Substance: SOFOSBUVIR
     Indication: CHRONIC HEPATITIS C
     Dosage: 400 MG, UNK
     Route: 065
     Dates: start: 20140508
  2. RIBAVIRIN. [Concomitant]
     Active Substance: RIBAVIRIN
  3. PEGYLATED INTERFERON ALPHA NOS [Concomitant]
     Active Substance: PEGINTERFERON ALFA-2A OR PEGINTERFERON ALFA-2B

REACTIONS (9)
  - Road traffic accident [Unknown]
  - Myalgia [Unknown]
  - Dizziness [Unknown]
  - Overdose [Unknown]
  - Insomnia [Unknown]
  - Fatigue [Unknown]
  - Loss of consciousness [Unknown]
  - Pain [Unknown]
  - Headache [Unknown]

NARRATIVE: CASE EVENT DATE: 20140710
